FAERS Safety Report 18349706 (Version 1)
Quarter: 2020Q4

REPORT INFORMATION
  Report Type: Spontaneous
  Country: US (occurrence: US)
  Receive Date: 20201006
  Receipt Date: 20201006
  Transmission Date: 20210114
  Serious: No
  Sender: FDA-Public Use
  Company Number: US-TEVA-2020-US-1835135

PATIENT
  Sex: Male

DRUGS (7)
  1. SYNRIBO [Suspect]
     Active Substance: OMACETAXINE MEPESUCCINATE
     Indication: CHRONIC MYELOID LEUKAEMIA
     Dosage: FREQUENCY:BIDX7 DAYS/28 DAY CYCLE
     Route: 058
     Dates: start: 20200823
  2. HYDROCHLOROTHIAZIDE. [Concomitant]
     Active Substance: HYDROCHLOROTHIAZIDE
  3. PROMETHAZINE HCL [Concomitant]
     Active Substance: PROMETHAZINE HYDROCHLORIDE
  4. MECLIZINE 25 [Concomitant]
  5. GLEEVEC [Concomitant]
     Active Substance: IMATINIB MESYLATE
  6. PSYLLIUM [Concomitant]
     Active Substance: PLANTAGO SEED
  7. LIDOCAINE. [Concomitant]
     Active Substance: LIDOCAINE

REACTIONS (1)
  - Tinnitus [Unknown]
